FAERS Safety Report 25976745 (Version 1)
Quarter: 2025Q4

REPORT INFORMATION
  Report Type: Report from Study
  Country: US (occurrence: US)
  Receive Date: 20251029
  Receipt Date: 20251029
  Transmission Date: 20260118
  Serious: Yes (Hospitalization)
  Sender: BIOGEN
  Company Number: US-BIOGEN-2087845

PATIENT
  Age: 64 Year
  Sex: Female

DRUGS (2)
  1. SKYCLARYS [Suspect]
     Active Substance: OMAVELOXOLONE
     Indication: Friedreich^s ataxia
     Dates: start: 20231122
  2. TELMISARTAN [Concomitant]
     Active Substance: TELMISARTAN
     Indication: Blood pressure measurement

REACTIONS (5)
  - Respiratory syncytial virus infection [Unknown]
  - Prescribed underdose [Unknown]
  - Product dose omission issue [Unknown]
  - Impaired gastric emptying [Unknown]
  - Osteoporosis [Unknown]
